FAERS Safety Report 5499306-7 (Version None)
Quarter: 2007Q4

REPORT INFORMATION
  Report Type: 
  Country: None (occurrence: None)
  Receive Date: 20071026
  Receipt Date: 20071025
  Transmission Date: 20080405
  Serious: Yes (Disabling)
  Sender: FDA-Public Use
  Company Number: A0689662A

PATIENT
  Age: 46 Year
  Sex: Female

DRUGS (1)
  1. ALLI [Suspect]
     Indication: DRUG USE FOR UNKNOWN INDICATION
     Route: 048
     Dates: start: 20071019

REACTIONS (10)
  - COAGULATION TIME SHORTENED [None]
  - COAGULOPATHY [None]
  - CONDITION AGGRAVATED [None]
  - DYSPNOEA [None]
  - EPISTAXIS [None]
  - MENORRHAGIA [None]
  - NASAL CONGESTION [None]
  - NASAL DRYNESS [None]
  - OLIGOMENORRHOEA [None]
  - POLYMENORRHOEA [None]
